FAERS Safety Report 6878140-7 (Version None)
Quarter: 2010Q2

REPORT INFORMATION
  Report Type: 
  Country: None (occurrence: None)
  Receive Date: 20100622
  Receipt Date: 20100427
  Transmission Date: 20101027
  Serious: No
  Sender: FDA-Public Use
  Company Number: 2010US000029

PATIENT
  Age: 45 Year
  Sex: Female

DRUGS (8)
  1. ENTEREG [Suspect]
     Indication: POSTOPERATIVE ILEUS
     Dosage: 12 MG; PO
     Route: 048
     Dates: start: 20100419, end: 20100422
  2. DILAUDID [Concomitant]
  3. LISINOPRIL [Concomitant]
  4. CELEXA [Concomitant]
  5. PRILOSEC [Concomitant]
  6. XANAX [Concomitant]
  7. FLEXERIL [Concomitant]
  8. UNASYN [Concomitant]

REACTIONS (2)
  - HYPERSENSITIVITY [None]
  - RASH GENERALISED [None]
